FAERS Safety Report 17286797 (Version 2)
Quarter: 2020Q1

REPORT INFORMATION
  Report Type: Spontaneous
  Country: KR (occurrence: KR)
  Receive Date: 20200119
  Receipt Date: 20200131
  Transmission Date: 20200409
  Serious: Yes (Other)
  Sender: FDA-Public Use
  Company Number: KR-BAXTER-2020BAX001304

PATIENT
  Age: 57 Year
  Sex: Female

DRUGS (4)
  1. ENDOXAN 500MG INJ. (CYCLOPHOSPHAMIDE) [Suspect]
     Active Substance: CYCLOPHOSPHAMIDE
     Indication: METASTATIC NEOPLASM
     Route: 065
     Dates: start: 20120324, end: 20120525
  2. DOXIL [Suspect]
     Active Substance: DOXORUBICIN HYDROCHLORIDE
     Indication: MYELODYSPLASTIC SYNDROME
     Route: 065
     Dates: start: 20120324, end: 20120525
  3. LAPATINIB [Suspect]
     Active Substance: LAPATINIB
     Indication: METASTATIC NEOPLASM
     Route: 065
     Dates: start: 201403
  4. CAPECITABINE. [Suspect]
     Active Substance: CAPECITABINE
     Indication: METASTATIC NEOPLASM
     Route: 065
     Dates: start: 201403

REACTIONS (1)
  - Myelodysplastic syndrome [Recovering/Resolving]
